FAERS Safety Report 21265049 (Version 3)
Quarter: 2022Q4

REPORT INFORMATION
  Report Type: Report from Study
  Country: CO (occurrence: CO)
  Receive Date: 20220829
  Receipt Date: 20221004
  Transmission Date: 20230113
  Serious: Yes (Other)
  Sender: FDA-Public Use
  Company Number: CO-ASTELLAS-2022US030224

PATIENT
  Age: 88 Year
  Sex: Male

DRUGS (1)
  1. ENZALUTAMIDE [Suspect]
     Active Substance: ENZALUTAMIDE
     Indication: Hormone-refractory prostate cancer
     Route: 048
     Dates: start: 20210205

REACTIONS (9)
  - Abdominal pain upper [Recovering/Resolving]
  - Dizziness [Recovering/Resolving]
  - Yellow skin [Recovering/Resolving]
  - Gait disturbance [Recovering/Resolving]
  - Pallor [Recovering/Resolving]
  - Depressed mood [Recovering/Resolving]
  - Decreased activity [Recovered/Resolved]
  - Illness [Recovered/Resolved]
  - Diarrhoea [Not Recovered/Not Resolved]
